FAERS Safety Report 9396034 (Version 3)
Quarter: 2013Q3

REPORT INFORMATION
  Report Type: Spontaneous
  Country: US (occurrence: US)
  Receive Date: 20130711
  Receipt Date: 20130816
  Transmission Date: 20140515
  Serious: No
  Sender: FDA-Public Use
  Company Number: US-PFIZER INC-2013201823

PATIENT
  Age: 66 Year
  Sex: Female
  Weight: 53.97 kg

DRUGS (3)
  1. GEODON [Suspect]
     Indication: SCHIZOPHRENIA
     Dosage: 60 MG, 2X/DAY
     Route: 048
     Dates: start: 201110, end: 2012
  2. ZIPRASIDONE HYDROCHLORIDE [Suspect]
     Indication: SCHIZOPHRENIA
     Dosage: 60 MG, 2X/DAY
     Route: 048
     Dates: start: 2012, end: 2012
  3. SERTRALINE [Concomitant]
     Dosage: UNK

REACTIONS (4)
  - Drug effect incomplete [Unknown]
  - Pain [Unknown]
  - Feeling abnormal [Unknown]
  - Product quality issue [Unknown]
